FAERS Safety Report 25399729 (Version 1)
Quarter: 2025Q2

REPORT INFORMATION
  Report Type: Spontaneous
  Country: US (occurrence: US)
  Receive Date: 20250605
  Receipt Date: 20250605
  Transmission Date: 20250717
  Serious: No
  Sender: TEVA
  Company Number: US-TEVA-VS-3338211

PATIENT
  Sex: Female

DRUGS (1)
  1. UZEDY [Suspect]
     Active Substance: RISPERIDONE
     Indication: Product used for unknown indication
     Dosage: GIVEN IN THE ABDOMEN
     Route: 065

REACTIONS (5)
  - Akathisia [Not Recovered/Not Resolved]
  - Blepharospasm [Unknown]
  - Restlessness [Unknown]
  - Injection site nodule [Unknown]
  - Disturbance in attention [Unknown]
